FAERS Safety Report 7981830-6 (Version None)
Quarter: 2011Q4

REPORT INFORMATION
  Report Type: 
  Country: None (occurrence: None)
  Receive Date: 20111215
  Receipt Date: 20111208
  Transmission Date: 20120403
  Serious: Yes (Death, Life-Threatening, Hospitalization, Other)
  Sender: FDA-Public Use
  Company Number: JP-ASTELLAS-2011US008371

PATIENT
  Sex: Male
  Weight: 43 kg

DRUGS (7)
  1. PREDNISOLONE [Suspect]
     Dosage: 5 MG, UID/QD
     Route: 048
     Dates: start: 20110607, end: 20110620
  2. PREDNISOLONE [Suspect]
     Dosage: 2.5 MG, UID/QD
     Route: 048
     Dates: start: 20110621, end: 20110704
  3. CINAL [Concomitant]
     Indication: PRODUCT USED FOR UNKNOWN INDICATION
     Dosage: 200 MG, TID
     Route: 048
     Dates: start: 20110808, end: 20110821
  4. ADONA [Concomitant]
     Indication: PRODUCT USED FOR UNKNOWN INDICATION
     Dosage: 10 MG, TID
     Route: 048
  5. TRANEXAMIC ACID [Concomitant]
     Indication: PRODUCT USED FOR UNKNOWN INDICATION
     Dosage: 250 MG, BID
     Route: 048
     Dates: start: 20110808, end: 20110821
  6. TARCEVA [Suspect]
     Indication: LUNG SQUAMOUS CELL CARCINOMA STAGE UNSPECIFIED
     Dosage: 150 MG, UID/QD
     Route: 048
     Dates: start: 20110510, end: 20110811
  7. PREDNISOLONE [Suspect]
     Indication: PROPHYLAXIS
     Dosage: 10 MG, UID/QD
     Route: 048
     Dates: start: 20110510, end: 20110606

REACTIONS (4)
  - INTERSTITIAL LUNG DISEASE [None]
  - MYOCARDIAL RUPTURE [None]
  - ACUTE MYOCARDIAL INFARCTION [None]
  - RASH [None]
